FAERS Safety Report 4365069-1 (Version None)
Quarter: 2004Q2

REPORT INFORMATION
  Report Type: 
  Country: None (occurrence: None)
  Receive Date: 20040521
  Receipt Date: 20040511
  Transmission Date: 20050107
  Serious: Yes (Hospitalization)
  Sender: FDA-Public Use
  Company Number: JACFRA2000000434

PATIENT
  Age: 36 Year
  Sex: Male

DRUGS (7)
  1. TOPIRAMATE [Suspect]
     Indication: EPILEPSY
     Dosage: SEE IMAGE
     Route: 048
     Dates: start: 19981201, end: 19990101
  2. TOPIRAMATE [Suspect]
     Indication: EPILEPSY
     Dosage: SEE IMAGE
     Route: 048
     Dates: start: 19990101, end: 19990201
  3. TOPIRAMATE [Suspect]
     Indication: EPILEPSY
     Dosage: SEE IMAGE
     Route: 048
     Dates: start: 19990201
  4. VALPROATE SODIUM [Suspect]
     Indication: EPILEPSY
     Dosage: SEE IMAGE
     Route: 048
     Dates: start: 19940101
  5. TEGRETOL [Concomitant]
  6. FLUOXETINE (FLUOXETINE ) TABLETS [Concomitant]
  7. PRIMIDONE (PRIMIDONE) UNSPECIFIED [Concomitant]

REACTIONS (15)
  - AGNOSIA [None]
  - AMNESIA [None]
  - APHASIA [None]
  - APRAXIA [None]
  - COGNITIVE DISORDER [None]
  - DISORIENTATION [None]
  - DRUG INTERACTION [None]
  - ELECTROENCEPHALOGRAM ABNORMAL [None]
  - ENCEPHALOPATHY [None]
  - GAMMA-GLUTAMYLTRANSFERASE INCREASED [None]
  - HYPERAMMONAEMIA [None]
  - MENTAL DISORDER [None]
  - NERVOUS SYSTEM DISORDER [None]
  - PERSEVERATION [None]
  - SOMNOLENCE [None]
